FAERS Safety Report 16449683 (Version 1)
Quarter: 2019Q2

REPORT INFORMATION
  Report Type: Spontaneous
  Country: US (occurrence: US)
  Receive Date: 20190619
  Receipt Date: 20190619
  Transmission Date: 20190711
  Serious: Yes (Other)
  Sender: FDA-Public Use
  Company Number: US-ROCHE-2300965

PATIENT
  Age: 67 Year
  Sex: Female
  Weight: 61.29 kg

DRUGS (1)
  1. ACTEMRA [Suspect]
     Active Substance: TOCILIZUMAB
     Indication: RHEUMATOID ARTHRITIS
     Dosage: ONGOING: NO
     Route: 042
     Dates: start: 20181101

REACTIONS (4)
  - Aphthous ulcer [Recovered/Resolved]
  - Bronchitis [Recovered/Resolved]
  - Diverticulitis [Recovered/Resolved]
  - Pertussis [Recovering/Resolving]

NARRATIVE: CASE EVENT DATE: 201811
